FAERS Safety Report 5604731-7 (Version None)
Quarter: 2008Q1

REPORT INFORMATION
  Report Type: 
  Country: None (occurrence: None)
  Receive Date: 20080123
  Receipt Date: 20080107
  Transmission Date: 20080703
  Serious: Yes (Death)
  Sender: FDA-Public Use
  Company Number: PAR_02048_2008

PATIENT
  Sex: Male

DRUGS (5)
  1. ZOLPIDEM [Suspect]
     Indication: DRUG USE FOR UNKNOWN INDICATION
     Dosage: DF
  2. UNKNOWN DRUG [Suspect]
     Indication: DRUG USE FOR UNKNOWN INDICATION
     Dosage: DF
  3. MOEXIPRIL HCL [Suspect]
     Indication: DRUG USE FOR UNKNOWN INDICATION
     Dosage: DF
  4. DIPYRIDAMOLE/ASPIRIN [Suspect]
     Indication: DRUG USE FOR UNKNOWN INDICATION
     Dosage: DF
  5. ATORVASTATIN [Suspect]
     Indication: DRUG USE FOR UNKNOWN INDICATION
     Dosage: DF

REACTIONS (3)
  - CARDIAC ARREST [None]
  - POISONING [None]
  - RESPIRATORY ARREST [None]
